FAERS Safety Report 4542877-5 (Version None)
Quarter: 2004Q4

REPORT INFORMATION
  Report Type: 
  Country: None (occurrence: None)
  Receive Date: 20041229
  Receipt Date: 20041216
  Transmission Date: 20050328
  Serious: Yes (Other)
  Sender: FDA-Public Use
  Company Number: 2004084294

PATIENT
  Sex: Male

DRUGS (1)
  1. NORVASC [Suspect]
     Indication: HYPERTENSION
     Dates: start: 20040101

REACTIONS (4)
  - CATARACT OPERATION [None]
  - EYE PRURITUS [None]
  - EYE REDNESS [None]
  - POST PROCEDURAL COMPLICATION [None]
